FAERS Safety Report 6858827-2 (Version None)
Quarter: 2010Q3

REPORT INFORMATION
  Report Type: 
  Country: None (occurrence: None)
  Receive Date: 20100719
  Receipt Date: 20080212
  Transmission Date: 20110219
  Serious: No
  Sender: FDA-Public Use
  Company Number: US-PFIZER INC-2008015652

PATIENT
  Sex: Female
  Weight: 62.3 kg

DRUGS (4)
  1. CHANTIX [Suspect]
     Indication: SMOKING CESSATION THERAPY
     Route: 048
     Dates: start: 20071201, end: 20071201
  2. TOPROL-XL [Concomitant]
     Indication: MITRAL VALVE PROLAPSE
     Route: 048
  3. CONTRACEPTIVE, UNSPECIFIED [Concomitant]
     Route: 048
  4. LEXAPRO [Concomitant]
     Route: 048

REACTIONS (2)
  - MALAISE [None]
  - MEDICATION ERROR [None]
